FAERS Safety Report 19241144 (Version 1)
Quarter: 2021Q2

REPORT INFORMATION
  Report Type: Spontaneous
  Country: US (occurrence: US)
  Receive Date: 20210510
  Receipt Date: 20210510
  Transmission Date: 20210717
  Serious: Yes (Hospitalization)
  Sender: FDA-Public Use
  Company Number: None

PATIENT
  Age: 70 Year
  Sex: Female

DRUGS (1)
  1. COPAXONE [Suspect]
     Active Substance: GLATIRAMER ACETATE
     Indication: MULTIPLE SCLEROSIS
     Dosage: OTHER FREQUENCY:OTHER;?
     Route: 058
     Dates: start: 2018

REACTIONS (2)
  - Multiple sclerosis [None]
  - Condition aggravated [None]

NARRATIVE: CASE EVENT DATE: 20210503
